FAERS Safety Report 15329858 (Version 1)
Quarter: 2018Q3

REPORT INFORMATION
  Report Type: Spontaneous
  Country: CY (occurrence: CY)
  Receive Date: 20180824
  Receipt Date: 20180824
  Transmission Date: 20181010
  Serious: Yes (Disabling)
  Sender: FDA-Public Use
  Company Number: None

PATIENT
  Age: 31 Year
  Sex: Female
  Weight: 64 kg

DRUGS (2)
  1. MEDOCIPRIN (CIPROFLOXACIN HYDROCHLORIDE) [Suspect]
     Active Substance: CIPROFLOXACIN HYDROCHLORIDE
     Indication: INFLAMMATION
     Dosage: ?          QUANTITY:2 TABLET(S);?
     Route: 048
     Dates: start: 20180724, end: 20180729
  2. NATURAL MULTIVITAMINS [Concomitant]

REACTIONS (7)
  - Back pain [None]
  - Arthralgia [None]
  - Headache [None]
  - Abdominal pain upper [None]
  - Hypoaesthesia [None]
  - Abdominal distension [None]
  - Neck pain [None]

NARRATIVE: CASE EVENT DATE: 20180724
